FAERS Safety Report 8796186 (Version 1)
Quarter: 2012Q4

REPORT INFORMATION
  Report Type: 
  Country: US (occurrence: US)
  Receive Date: 20120920
  Receipt Date: 20120920
  Transmission Date: 20130627
  Serious: Yes (Death, Other)
  Sender: FDA-Public Use
  Company Number: US-PFIZER INC-2012229979

PATIENT
  Age: 75 Year
  Sex: Female

DRUGS (10)
  1. SUTENT [Suspect]
     Indication: RENAL CANCER
     Dosage: 50 mg, 1x/day
     Route: 048
     Dates: start: 20120731
  2. WARFARIN [Concomitant]
  3. VICODIN [Concomitant]
  4. METOPROLOL [Concomitant]
  5. HYDROCODONE [Concomitant]
  6. ONDANSETRON [Concomitant]
  7. SENNA [Concomitant]
  8. DILTIAZEM [Concomitant]
  9. MIRTAZAPINE [Concomitant]
  10. BISACODYL [Concomitant]

REACTIONS (1)
  - Death [Fatal]
